FAERS Safety Report 11350859 (Version 1)
Quarter: 2015Q3

REPORT INFORMATION
  Report Type: Spontaneous
  Country: US (occurrence: None)
  Receive Date: 20150709
  Receipt Date: 20150709
  Transmission Date: 20151125
  Serious: Yes (Hospitalization)
  Sender: FDA-Public Use
  Company Number: PHEH2015US006932

PATIENT
  Age: 40 Year
  Sex: Male

DRUGS (3)
  1. SYMBICORT [Concomitant]
     Active Substance: BUDESONIDE\FORMOTEROL FUMARATE DIHYDRATE
  2. GLEEVEC [Suspect]
     Active Substance: IMATINIB MESYLATE
     Indication: PANCREATITIS ACUTE
     Route: 048
     Dates: start: 20130207
  3. SINGULAIR [Concomitant]
     Active Substance: MONTELUKAST SODIUM

REACTIONS (2)
  - Pancreatitis [None]
  - Product use issue [None]

NARRATIVE: CASE EVENT DATE: 20150307
